FAERS Safety Report 12443790 (Version 2)
Quarter: 2016Q2

REPORT INFORMATION
  Report Type: Spontaneous
  Country: ES (occurrence: ES)
  Receive Date: 20160607
  Receipt Date: 20160609
  Transmission Date: 20160815
  Serious: Yes (Hospitalization, Other)
  Sender: FDA-Public Use
  Company Number: ES-GILEAD-2016-0216833

PATIENT
  Age: 52 Year
  Sex: Female
  Weight: 55 kg

DRUGS (2)
  1. TRUVADA [Suspect]
     Active Substance: EMTRICITABINE\TENOFOVIR DISOPROXIL FUMARATE
     Indication: HIV INFECTION
     Route: 065
     Dates: start: 20160405
  2. TIVICAY [Suspect]
     Active Substance: DOLUTEGRAVIR SODIUM
     Indication: HIV INFECTION
     Dosage: 50 MG, QD
     Route: 048
     Dates: start: 20160405, end: 20160419

REACTIONS (5)
  - Major depression [Recovered/Resolved]
  - Delusion [Recovered/Resolved]
  - Disturbance in attention [Recovered/Resolved]
  - Suicidal ideation [Recovered/Resolved]
  - Hallucination, auditory [Recovered/Resolved]

NARRATIVE: CASE EVENT DATE: 20160409
